FAERS Safety Report 5408344-1 (Version None)
Quarter: 2007Q3

REPORT INFORMATION
  Report Type: 
  Country: None (occurrence: None)
  Receive Date: 20070807
  Receipt Date: 20070807
  Transmission Date: 20080115
  Serious: Yes (Other)
  Sender: FDA-Public Use
  Company Number: None

PATIENT
  Sex: Male
  Weight: 97.0698 kg

DRUGS (1)
  1. VYVANSE [Suspect]
     Indication: ATTENTION DEFICIT/HYPERACTIVITY DISORDER
     Dosage: 50MG ONE QAM PO
     Route: 048
     Dates: start: 20070801, end: 20070802

REACTIONS (4)
  - EAR DISCOMFORT [None]
  - EYE IRRITATION [None]
  - HEADACHE [None]
  - MUSCULOSKELETAL STIFFNESS [None]
